FAERS Safety Report 4315167-3 (Version None)
Quarter: 2004Q1

REPORT INFORMATION
  Report Type: 
  Country: None (occurrence: None)
  Receive Date: 20040310
  Receipt Date: 20040224
  Transmission Date: 20041129
  Serious: Yes (Hospitalization)
  Sender: FDA-Public Use
  Company Number: US-JNJFOC-20040205867

PATIENT
  Age: 51 Year
  Sex: Female
  Weight: 54.4316 kg

DRUGS (14)
  1. REMICADE [Suspect]
     Indication: ANKYLOSING SPONDYLITIS
     Dosage: SEE IMAGE
     Route: 042
     Dates: start: 20040211, end: 20040211
  2. PREDNISONE [Concomitant]
  3. CALCIUM (CALCIUM) [Concomitant]
  4. AMBIEN [Concomitant]
  5. MVI (MULTIVITAMINS) [Concomitant]
  6. FIORINAL [Concomitant]
  7. FLEXERIL [Concomitant]
  8. METHOTREXATE SODIUM [Concomitant]
  9. FOSAMAX [Concomitant]
  10. ACETYLSALICYLIC ACID SRT [Concomitant]
  11. PERCOCET [Concomitant]
  12. SKELEX (FERROCHOLINATE) [Concomitant]
  13. VICODIN [Concomitant]
  14. LEUCOVORIN (FOLINIC ACID) [Concomitant]

REACTIONS (3)
  - ARTHROPATHY [None]
  - BLOOD PRESSURE DECREASED [None]
  - CONDITION AGGRAVATED [None]
